FAERS Safety Report 5580181-7 (Version None)
Quarter: 2007Q4

REPORT INFORMATION
  Report Type: 
  Country: None (occurrence: None)
  Receive Date: 20071226
  Receipt Date: 20071130
  Transmission Date: 20080405
  Serious: Yes (Hospitalization)
  Sender: FDA-Public Use
  Company Number: WAES 0711USA04546

PATIENT
  Age: 76 Year
  Sex: Female

DRUGS (5)
  1. INDOCIN [Suspect]
     Indication: ANTIPYRESIS
     Dosage: 25 MG/DAILY, RECTAL
     Route: 054
     Dates: start: 20071105, end: 20071106
  2. DIOVAN [Concomitant]
  3. GLYCEOL [Concomitant]
  4. OMEPRAL [Concomitant]
  5. SALIPEX [Concomitant]

REACTIONS (1)
  - CEREBELLAR HAEMORRHAGE [None]
